FAERS Safety Report 21487217 (Version 1)
Quarter: 2022Q4

REPORT INFORMATION
  Report Type: Spontaneous
  Country: PR (occurrence: PR)
  Receive Date: 20221020
  Receipt Date: 20221020
  Transmission Date: 20230113
  Serious: No
  Sender: FDA-Public Use
  Company Number: PR-BRISTOL-MYERS SQUIBB COMPANY-2022-124439

PATIENT
  Age: 68 Year
  Sex: Female

DRUGS (1)
  1. REVLIMID [Suspect]
     Active Substance: LENALIDOMIDE
     Indication: Plasma cell myeloma
     Dosage: 10 MG DAILY FOR 21 DAYS AND 7 DAYS OFF
     Route: 048
     Dates: start: 20181226

REACTIONS (1)
  - Asthenia [Recovering/Resolving]

NARRATIVE: CASE EVENT DATE: 20220928
